FAERS Safety Report 20991669 (Version 1)
Quarter: 2022Q2

REPORT INFORMATION
  Report Type: Spontaneous
  Country: US (occurrence: US)
  Receive Date: 20220622
  Receipt Date: 20220622
  Transmission Date: 20220721
  Serious: Yes (Hospitalization, Other)
  Sender: FDA-Public Use
  Company Number: US-NOVARTISPH-NVSC2022US139706

PATIENT
  Age: 20 Year
  Sex: Male

DRUGS (1)
  1. PAZOPANIB [Suspect]
     Active Substance: PAZOPANIB
     Indication: Ewing^s sarcoma
     Dosage: UNK UNK, QD
     Route: 065

REACTIONS (5)
  - Musculoskeletal pain [Recovering/Resolving]
  - Withdrawal syndrome [Recovering/Resolving]
  - Ewing^s sarcoma [Unknown]
  - Malignant neoplasm progression [Unknown]
  - Product use in unapproved indication [Unknown]
